FAERS Safety Report 4925762-6 (Version None)
Quarter: 2006Q1

REPORT INFORMATION
  Report Type: 
  Country: None (occurrence: None)
  Receive Date: 20060228
  Receipt Date: 20050316
  Transmission Date: 20060701
  Serious: No
  Sender: FDA-Public Use
  Company Number: US-GLAXOSMITHKLINE-A0550050A

PATIENT
  Age: 10 Year
  Sex: Male

DRUGS (3)
  1. LAMICTAL [Suspect]
     Indication: BIPOLAR DISORDER
     Dosage: 25MG PER DAY
     Route: 048
     Dates: start: 20050306, end: 20050314
  2. LITHOBID [Concomitant]
     Indication: BIPOLAR DISORDER
     Dosage: 900MG PER DAY
     Route: 048
     Dates: start: 20040206
  3. ABILIFY [Concomitant]
     Indication: BIPOLAR DISORDER
     Dosage: 5MG AT NIGHT
     Route: 048
     Dates: start: 20040722

REACTIONS (3)
  - LYMPHADENOPATHY [None]
  - PYREXIA [None]
  - RASH PRURITIC [None]
